FAERS Safety Report 18217260 (Version 2)
Quarter: 2022Q3

REPORT INFORMATION
  Report Type: Report from Study
  Country: NL (occurrence: None)
  Receive Date: 20200901
  Receipt Date: 20220721
  Transmission Date: 20221027
  Serious: Yes (Hospitalization)
  Sender: FDA-Public Use
  Company Number: NL-ROCHE-2666193

PATIENT
  Age: 61 Year
  Sex: Female

DRUGS (2)
  1. TRASTUZUMAB [Suspect]
     Active Substance: TRASTUZUMAB
     Indication: Non-small cell lung cancer
     Dosage: 8 MG/KG LOADING DOSE, THEN 6 MG/KG?MOST CURRENT TREATMENT WAS ON 18/AUG/2020
     Route: 041
     Dates: start: 20200708
  2. PERTUZUMAB [Suspect]
     Active Substance: PERTUZUMAB
     Indication: Non-small cell lung cancer
     Dosage: 840 MG LOADING, THEN 420 MG?MOST DURRENT ADMINITRATION WAS ON 18/AUG/2020
     Route: 042
     Dates: start: 20200708

REACTIONS (1)
  - Pain [Recovered/Resolved]

NARRATIVE: CASE EVENT DATE: 20200824
